FAERS Safety Report 6877990-0 (Version None)
Quarter: 2010Q3

REPORT INFORMATION
  Report Type: 
  Country: None (occurrence: None)
  Receive Date: 20100727
  Receipt Date: 20100723
  Transmission Date: 20110219
  Serious: Yes (Hospitalization)
  Sender: FDA-Public Use
  Company Number: AT-WYE-G06102110

PATIENT
  Sex: Male

DRUGS (3)
  1. EFFEXOR XR [Suspect]
     Indication: DEPRESSION
     Dates: start: 20100217, end: 20100326
  2. EFFEXOR XR [Suspect]
     Dates: start: 20100327
  3. GUTRON [Concomitant]
     Indication: HYPOTONIA
     Dosage: 2.5 MG DAILY DOSE
     Dates: start: 20100312, end: 20100325

REACTIONS (2)
  - ANTIDEPRESSANT DRUG LEVEL INCREASED [None]
  - URINARY RETENTION [None]
